FAERS Safety Report 22108299 (Version 1)
Quarter: 2023Q1

REPORT INFORMATION
  Report Type: Spontaneous
  Country: US (occurrence: None)
  Receive Date: 20230316
  Receipt Date: 20230316
  Transmission Date: 20230418
  Serious: No
  Sender: FDA-Public Use
  Company Number: None

PATIENT
  Age: 73 Year
  Sex: Female
  Weight: 58.5 kg

DRUGS (9)
  1. PAXLOVID [Suspect]
     Active Substance: NIRMATRELVIR\RITONAVIR
     Indication: COVID-19
     Dosage: OTHER QUANTITY : 30 TABLET(S);?FREQUENCY : TWICE A DAY;?
     Route: 048
     Dates: start: 20221207, end: 20221210
  2. LOSARTAN [Concomitant]
     Active Substance: LOSARTAN
  3. LOVASTATIN [Concomitant]
     Active Substance: LOVASTATIN
  4. MELOXICAM [Concomitant]
     Active Substance: MELOXICAM
  5. GABAPENTIN [Concomitant]
     Active Substance: GABAPENTIN
  6. ESTRADIOL [Concomitant]
     Active Substance: ESTRADIOL
  7. GLUCOSAMINE [Concomitant]
     Active Substance: GLUCOSAMINE
  8. HERBALS\TURMERIC [Concomitant]
     Active Substance: HERBALS\TURMERIC
  9. TYLENOL [Concomitant]
     Active Substance: ACETAMINOPHEN

REACTIONS (4)
  - Nausea [None]
  - Abdominal discomfort [None]
  - Diarrhoea [None]
  - Irritable bowel syndrome [None]

NARRATIVE: CASE EVENT DATE: 20221210
